FAERS Safety Report 14231717 (Version 1)
Quarter: 2017Q4

REPORT INFORMATION
  Report Type: Other
  Country: FR (occurrence: FR)
  Receive Date: 20171128
  Receipt Date: 20171128
  Transmission Date: 20180321
  Serious: Yes (Other)
  Sender: FDA-Public Use
  Company Number: FR-B. BRAUN MEDICAL INC.-2036168

PATIENT
  Age: 67 Year
  Sex: Male

DRUGS (1)
  1. MEROPENEM FOR INJECTION USP AND SODIUM CHLORIDE INJECTION USP IN THE [Suspect]
     Active Substance: MEROPENEM\SODIUM CHLORIDE
     Indication: OSTEOMYELITIS
     Route: 042

REACTIONS (1)
  - Skin hyperpigmentation [Not Recovered/Not Resolved]
